FAERS Safety Report 4590688-7 (Version None)
Quarter: 2005Q1

REPORT INFORMATION
  Report Type: 
  Country: None (occurrence: None)
  Receive Date: 20050224
  Receipt Date: 20050110
  Transmission Date: 20050727
  Serious: Yes (Other)
  Sender: FDA-Public Use
  Company Number: US-MERCK-0501USA01639

PATIENT

DRUGS (1)
  1. SINGULAIR [Suspect]
     Route: 048

REACTIONS (5)
  - ALLERGIC GRANULOMATOUS ANGIITIS [None]
  - HAEMOLYTIC ANAEMIA [None]
  - LUNG INFILTRATION [None]
  - MUSCLE ENZYME INCREASED [None]
  - MYOCARDITIS [None]
